FAERS Safety Report 8278778-9 (Version None)
Quarter: 2012Q2

REPORT INFORMATION
  Report Type: 
  Country: None (occurrence: None)
  Receive Date: 20120412
  Receipt Date: 20110303
  Transmission Date: 20120825
  Serious: No
  Sender: FDA-Public Use
  Company Number: US-ASTRAZENECA-2011SE12124

PATIENT
  Age: 72 Year
  Sex: Female

DRUGS (17)
  1. BENTYL [Concomitant]
     Route: 048
  2. REGLAN [Concomitant]
     Dosage: 1/2 TABLET ORALLY ONCE A DAY
     Route: 048
  3. CALCIUM CITRATE [Concomitant]
     Route: 048
  4. ACIDOPHILUS [Concomitant]
     Dosage: 1 TAB ONCE A DAY
     Route: 048
  5. NEXIUM [Suspect]
     Route: 048
  6. FLAX SEED OIL [Concomitant]
     Route: 048
  7. LECITHIN [Concomitant]
     Dosage: ONE TABLET ONCE A DAY
     Route: 048
  8. DIOVAN [Concomitant]
     Route: 048
  9. VITAMIN D [Concomitant]
     Route: 048
  10. ASPIR-LOW [Concomitant]
     Route: 048
  11. CO-Q10 [Concomitant]
     Route: 048
  12. VITAMIN B COMPLEX CAP [Concomitant]
     Route: 048
  13. XIFAXAN [Concomitant]
     Route: 048
  14. CRESTOR [Suspect]
     Route: 048
  15. CLONAZEPAM [Concomitant]
     Dosage: 1/2 TO 1 TABLET ORALLY AT BEDTIME PRN FOR SLEEP
     Route: 048
  16. FUROSEMIDE [Concomitant]
     Route: 048
  17. CARVEDILOL [Concomitant]
     Route: 048

REACTIONS (17)
  - HYPERLIPIDAEMIA [None]
  - ANXIETY DISORDER [None]
  - DEPRESSION [None]
  - DRUG INEFFECTIVE [None]
  - DRUG HYPERSENSITIVITY [None]
  - TYPE 2 DIABETES MELLITUS [None]
  - GOUT [None]
  - OEDEMA [None]
  - GASTROOESOPHAGEAL REFLUX DISEASE [None]
  - HEPATIC CIRRHOSIS [None]
  - HEPATIC STEATOSIS [None]
  - URINARY TRACT INFECTION [None]
  - ESSENTIAL HYPERTENSION [None]
  - IRRITABLE BOWEL SYNDROME [None]
  - DIABETIC NEUROPATHY [None]
  - ABDOMINAL PAIN LOWER [None]
  - HYPERTENSION [None]
